FAERS Safety Report 24108424 (Version 1)
Quarter: 2024Q3

REPORT INFORMATION
  Report Type: Report from Study
  Country: IN (occurrence: IN)
  Receive Date: 20240718
  Receipt Date: 20240718
  Transmission Date: 20241017
  Serious: Yes (Death)
  Sender: ROCHE
  Company Number: IN-ROCHE-3212724

PATIENT
  Age: 74 Year
  Sex: Male
  Weight: 59.5 kg

DRUGS (4)
  1. TECENTRIQ [Suspect]
     Active Substance: ATEZOLIZUMAB
     Indication: Hepatocellular carcinoma
     Dosage: 9TH CYCLE OF ATEZOLIZUMAB WAS SCHEDULED BY THE PHYSICIAN FOR THE 23RD DAY INSTEAD OF THE 21-DAY ?11T
     Route: 042
     Dates: start: 20221008
  2. TECENTRIQ [Suspect]
     Active Substance: ATEZOLIZUMAB
     Route: 042
  3. TECENTRIQ [Suspect]
     Active Substance: ATEZOLIZUMAB
     Route: 042
  4. AVASTIN [Suspect]
     Active Substance: BEVACIZUMAB
     Indication: Hepatocellular carcinoma
     Route: 042
     Dates: start: 20221008

REACTIONS (5)
  - Nasopharyngitis [Unknown]
  - Cough [Unknown]
  - Lower respiratory tract infection [Unknown]
  - Off label use [Unknown]
  - Death [Fatal]

NARRATIVE: CASE EVENT DATE: 20240508
